FAERS Safety Report 9822384 (Version 1)
Quarter: 2014Q1

REPORT INFORMATION
  Report Type: Spontaneous
  Country: US (occurrence: US)
  Receive Date: 20140116
  Receipt Date: 20140116
  Transmission Date: 20141002
  Serious: Yes (Death, Congenital Anomaly)
  Sender: FDA-Public Use
  Company Number: US-FRI-1000052761

PATIENT
  Age: 0 Day
  Sex: Female

DRUGS (1)
  1. LEXAPRO [Suspect]
     Route: 064

REACTIONS (8)
  - Atrial septal defect [Fatal]
  - Ventricular septal defect [Fatal]
  - Patent ductus arteriosus [Fatal]
  - Atrial septal defect [Fatal]
  - Coarctation of the aorta [Fatal]
  - Right ventricle outflow tract obstruction [Fatal]
  - Left ventricle outflow tract obstruction [Fatal]
  - Pulmonary hypertension [Fatal]
